FAERS Safety Report 5227380-1 (Version None)
Quarter: 2007Q1

REPORT INFORMATION
  Report Type: 
  Country: None (occurrence: None)
  Receive Date: 20070202
  Receipt Date: 20070122
  Transmission Date: 20070707
  Serious: Yes (Hospitalization)
  Sender: FDA-Public Use
  Company Number: 2007SE00413

PATIENT
  Age: 62 Year
  Sex: Female

DRUGS (3)
  1. NOLVADEX [Suspect]
     Indication: GENITAL NEOPLASM MALIGNANT FEMALE
     Route: 048
  2. BELLADONNA [Concomitant]
  3. TRYPTIZOL [Concomitant]

REACTIONS (1)
  - CEREBRAL INFARCTION [None]
